FAERS Safety Report 16351241 (Version 3)
Quarter: 2022Q1

REPORT INFORMATION
  Report Type: Spontaneous
  Country: FR (occurrence: FR)
  Receive Date: 20190524
  Receipt Date: 20220323
  Transmission Date: 20220423
  Serious: Yes (Life-Threatening, Other)
  Sender: FDA-Public Use
  Company Number: FR-AUROBINDO-AUR-APL-2019-029258

PATIENT
  Age: 71 Year
  Sex: Female
  Weight: 105 kg

DRUGS (9)
  1. LAMOTRIGINE [Suspect]
     Active Substance: LAMOTRIGINE
     Indication: Mixed anxiety and depressive disorder
     Dosage: 125 MILLIGRAM, ONCE A DAY, 75MG MORNING + 50MG EVENING (ON 05/AUG/2018, RECEIVED MOST RECENT DOSE OF
     Route: 048
     Dates: start: 20180719, end: 20180805
  2. ANAFRANIL [Suspect]
     Active Substance: CLOMIPRAMINE HYDROCHLORIDE
     Indication: Mixed anxiety and depressive disorder
     Dosage: 2 DOSAGE FORM, ONCE A DAY (ON 05/AUG/2018, RECEIVED MOST RECENT DOSE OF CLOMIPRAMINE HYDROCHLORIDE.
     Route: 048
     Dates: start: 20180703, end: 20180805
  3. RISPERDAL [Suspect]
     Active Substance: RISPERIDONE
     Indication: Mixed anxiety and depressive disorder
     Dosage: 1 MILLILITER, ONCE A DAY (ON 05/AUG/2018, RECEIVED MOST RECENT DOSE )
     Route: 048
     Dates: start: 20180724, end: 20180805
  4. VALIUM [Suspect]
     Active Substance: DIAZEPAM
     Indication: Mixed anxiety and depressive disorder
     Dosage: 30 GTT DROPS, ONCE A DAY (ON 05/AUG/2018, RECEIVED MOST RECENT DOSE)
     Route: 048
     Dates: start: 20180804, end: 20180805
  5. ATORVASTATIN [Concomitant]
     Active Substance: ATORVASTATIN
     Indication: Product used for unknown indication
     Dosage: UNK
     Route: 065
  6. AMIODARONE [Concomitant]
     Active Substance: AMIODARONE
     Indication: Product used for unknown indication
     Dosage: UNK
     Route: 065
  7. PRADAXA [Concomitant]
     Active Substance: DABIGATRAN ETEXILATE MESYLATE
     Indication: Product used for unknown indication
     Dosage: UNK
     Route: 065
  8. PERINDOPRIL ARGININE [Concomitant]
     Active Substance: PERINDOPRIL ARGININE
     Indication: Product used for unknown indication
     Dosage: UNK
     Route: 065
  9. PANTOPRAZOLE [Concomitant]
     Active Substance: PANTOPRAZOLE
     Indication: Product used for unknown indication
     Dosage: UNK
     Route: 065

REACTIONS (1)
  - Neuroleptic malignant syndrome [Recovered/Resolved]

NARRATIVE: CASE EVENT DATE: 20180805
